FAERS Safety Report 8012678-4 (Version None)
Quarter: 2011Q4

REPORT INFORMATION
  Report Type: 
  Country: None (occurrence: None)
  Receive Date: 20111223
  Receipt Date: 20111223
  Transmission Date: 20120403
  Serious: Yes (Life-Threatening, Disabling)
  Sender: FDA-Public Use
  Company Number: None

PATIENT
  Age: 64 Year
  Sex: Male
  Weight: 86.4 kg

DRUGS (1)
  1. AVODART [Suspect]
     Indication: BENIGN PROSTATIC HYPERPLASIA
     Dosage: .05 MG 1 /DAY ORAL
     Route: 048
     Dates: start: 20100610, end: 20110608

REACTIONS (3)
  - CARDIAC DISORDER [None]
  - HEART VALVE INCOMPETENCE [None]
  - ATRIAL FIBRILLATION [None]
